FAERS Safety Report 8561051-9 (Version None)
Quarter: 2012Q3

REPORT INFORMATION
  Report Type: 
  Country: None (occurrence: None)
  Receive Date: 20120802
  Receipt Date: 20111109
  Transmission Date: 20120928
  Serious: Yes (Life-Threatening, Hospitalization)
  Sender: FDA-Public Use
  Company Number: US-BRISTOL-MYERS SQUIBB COMPANY-16222259

PATIENT
  Sex: Male

DRUGS (4)
  1. VIREAD [Suspect]
  2. VIDEX [Suspect]
  3. REYATAZ [Suspect]
  4. NORVIR [Suspect]

REACTIONS (1)
  - ADVERSE EVENT [None]
